FAERS Safety Report 15076952 (Version 4)
Quarter: 2018Q3

REPORT INFORMATION
  Report Type: Report from Study
  Country: CA (occurrence: CA)
  Receive Date: 20180627
  Receipt Date: 20180723
  Transmission Date: 20181010
  Serious: No
  Sender: FDA-Public Use
  Company Number: CA-AMGEN-CANSL2018078988

PATIENT
  Age: 69 Year
  Sex: Male
  Weight: 59.5 kg

DRUGS (5)
  1. DECADRON [Suspect]
     Active Substance: DEXAMETHASONE
     Indication: PLASMA CELL MYELOMA
     Dosage: 40 MG, UNK
     Route: 065
  2. KYPROLIS [Suspect]
     Active Substance: CARFILZOMIB
     Indication: PLASMA CELL MYELOMA
     Dosage: 56 MG/M2, 2 DAYS A WEEK FOR 3 WEEKS WITH ONE WEEK OFF/T1,2,8,9,15,16, Q28DAYS
     Route: 042
     Dates: start: 20180327
  3. PREDNISONE. [Suspect]
     Active Substance: PREDNISONE
     Indication: PLASMA CELL MYELOMA
     Dosage: 25 MG, UNK
     Route: 065
  4. KYPROLIS [Suspect]
     Active Substance: CARFILZOMIB
     Dosage: 56 MG/M2, 2 DAYS A WEEK FOR 3 WEEKS WITH ONE WEEK OFF/T1,2,8,9,15,16, Q28DAYS
     Route: 042
  5. KYPROLIS [Suspect]
     Active Substance: CARFILZOMIB
     Dosage: 56 MG/M2, 2 DAYS A WEEK FOR 3 WEEKS WITH ONE WEEK OFF/T1,2,8,9,15,16, Q28DAYS
     Route: 042

REACTIONS (10)
  - Pain [Not Recovered/Not Resolved]
  - Malaise [Recovering/Resolving]
  - Off label use [Unknown]
  - Sleep disorder due to a general medical condition [Not Recovered/Not Resolved]
  - Platelet count increased [Unknown]
  - Chest pain [Recovering/Resolving]
  - Fatigue [Not Recovered/Not Resolved]
  - Depression [Recovered/Resolved]
  - Dyspepsia [Recovered/Resolved]
  - Dyspnoea [Not Recovered/Not Resolved]

NARRATIVE: CASE EVENT DATE: 2018
